FAERS Safety Report 9796717 (Version 4)
Quarter: 2014Q1

REPORT INFORMATION
  Report Type: Report from Study
  Country: US (occurrence: US)
  Receive Date: 20140103
  Receipt Date: 20140213
  Transmission Date: 20141002
  Serious: Yes (Hospitalization)
  Sender: FDA-Public Use
  Company Number: US-ACTELION-A-US2012-72508

PATIENT
  Age: 72 Year
  Sex: Female

DRUGS (5)
  1. TRACLEER [Suspect]
     Indication: PULMONARY ARTERIAL HYPERTENSION
     Dosage: UNK
     Route: 048
  2. TYVASO [Concomitant]
  3. ADCIRCA [Concomitant]
  4. LETAIRIS [Concomitant]
  5. WARFARIN [Concomitant]

REACTIONS (5)
  - Gastrooesophageal reflux disease [Recovering/Resolving]
  - Cough [Unknown]
  - Throat irritation [Unknown]
  - Fall [Unknown]
  - Pain [Unknown]
